FAERS Safety Report 5188893-4 (Version None)
Quarter: 2006Q4

REPORT INFORMATION
  Report Type: 
  Country: None (occurrence: None)
  Receive Date: 20061221
  Receipt Date: 20061120
  Transmission Date: 20070319
  Serious: Yes (Hospitalization)
  Sender: FDA-Public Use
  Company Number: US-BOEHRINGER INGELHEIM PHARMACEUTICALS, INC.-2006-BP-13880BP

PATIENT
  Sex: Female

DRUGS (4)
  1. MIRAPEX [Suspect]
     Indication: RESTLESS LEGS SYNDROME
     Route: 048
     Dates: start: 20030101, end: 20061101
  2. MIRAPEX [Suspect]
     Route: 048
     Dates: start: 20060101
  3. CYMBALTA [Concomitant]
     Indication: DEPRESSION
     Dates: start: 20040101
  4. LORAZEPAM [Concomitant]
     Indication: INSOMNIA
     Dates: start: 20050101

REACTIONS (2)
  - INSOMNIA [None]
  - SUICIDAL IDEATION [None]
